FAERS Safety Report 10246493 (Version 1)
Quarter: 2014Q2

REPORT INFORMATION
  Report Type: Report from Study
  Country: US (occurrence: US)
  Receive Date: 20140619
  Receipt Date: 20140619
  Transmission Date: 20141212
  Serious: Yes (Disabling, Other)
  Sender: FDA-Public Use
  Company Number: PHEH2014US012159

PATIENT
  Sex: Male

DRUGS (1)
  1. DIOVAN [Suspect]
     Dosage: 320 MG, QD
     Route: 048

REACTIONS (14)
  - General physical health deterioration [Unknown]
  - Road traffic accident [Unknown]
  - Depression [Unknown]
  - Spinal cord injury [Unknown]
  - Back pain [Unknown]
  - Migraine [Unknown]
  - Sleep apnoea syndrome [Unknown]
  - Joint swelling [Unknown]
  - Glucose tolerance impaired [Unknown]
  - Urinary tract disorder [Unknown]
  - Pain [Unknown]
  - Generalised anxiety disorder [Unknown]
  - Blood pressure inadequately controlled [Unknown]
  - Hypertension [Unknown]
